FAERS Safety Report 7912846-3 (Version None)
Quarter: 2011Q4

REPORT INFORMATION
  Report Type: 
  Country: None (occurrence: None)
  Receive Date: 20111114
  Receipt Date: 20111103
  Transmission Date: 20120403
  Serious: Yes (Life-Threatening)
  Sender: FDA-Public Use
  Company Number: FR-GLAXOSMITHKLINE-B0760337A

PATIENT
  Sex: Female

DRUGS (3)
  1. BETASERC [Concomitant]
     Indication: PRODUCT USED FOR UNKNOWN INDICATION
     Dosage: 1TAB SINGLE DOSE
     Route: 048
     Dates: start: 20110204, end: 20110204
  2. CEFUROXIME [Suspect]
     Indication: SINUSITIS
     Dosage: 500MG SINGLE DOSE
     Route: 048
     Dates: start: 20110204, end: 20110204
  3. IOPAMIDOL [Concomitant]
     Indication: COMPUTERISED TOMOGRAM
     Dosage: 1INJ SINGLE DOSE
     Route: 042
     Dates: start: 20110204, end: 20110204

REACTIONS (8)
  - FACE OEDEMA [None]
  - LOSS OF CONSCIOUSNESS [None]
  - PRURITUS [None]
  - ANAPHYLACTIC SHOCK [None]
  - MALAISE [None]
  - VOMITING [None]
  - URTICARIA [None]
  - CHEST DISCOMFORT [None]
